FAERS Safety Report 7222592-X (Version None)
Quarter: 2011Q1

REPORT INFORMATION
  Report Type: 
  Country: None (occurrence: None)
  Receive Date: 20110112
  Receipt Date: 20110107
  Transmission Date: 20110831
  Serious: Yes (Hospitalization)
  Sender: FDA-Public Use
  Company Number: US-ROXANE LABORATORIES, INC.-2011-RO-00038RO

PATIENT
  Age: 27 Year
  Sex: Male

DRUGS (2)
  1. CITALOPRAM [Suspect]
     Indication: ANXIETY
  2. CITALOPRAM [Suspect]
     Indication: DEPRESSIVE SYMPTOM
     Dosage: 20 MG

REACTIONS (8)
  - PSYCHOTIC DISORDER [None]
  - PARAESTHESIA [None]
  - DISTURBANCE IN ATTENTION [None]
  - DELUSION [None]
  - HYPOAESTHESIA [None]
  - SUSPICIOUSNESS [None]
  - AGITATION [None]
  - HALLUCINATION [None]
